FAERS Safety Report 4381260-2 (Version None)
Quarter: 2004Q2

REPORT INFORMATION
  Report Type: 
  Country: None (occurrence: None)
  Receive Date: 20040617
  Receipt Date: 20040617
  Transmission Date: 20050107
  Serious: Yes (Other)
  Sender: FDA-Public Use
  Company Number: None

PATIENT
  Sex: Female
  Weight: 56.6996 kg

DRUGS (1)
  1. PEROXETINE HCL  40MG Q DAY [Suspect]
     Indication: ANXIETY
     Dosage: 40 MG QD ORALLY
     Route: 048
     Dates: start: 20010601, end: 20040401

REACTIONS (10)
  - ABNORMAL DREAMS [None]
  - ANGER [None]
  - ANXIETY [None]
  - DISTURBANCE IN ATTENTION [None]
  - DRUG WITHDRAWAL SYNDROME [None]
  - OBSESSIVE-COMPULSIVE DISORDER [None]
  - PAINFUL DEFAECATION [None]
  - SELF MUTILATION [None]
  - SUICIDAL IDEATION [None]
  - WEIGHT INCREASED [None]
